FAERS Safety Report 21001765 (Version 1)
Quarter: 2022Q2

REPORT INFORMATION
  Report Type: Spontaneous
  Country: US (occurrence: US)
  Receive Date: 20220624
  Receipt Date: 20220624
  Transmission Date: 20220720
  Serious: No
  Sender: FDA-Public Use
  Company Number: US-BioHaven Pharmaceuticals-2022BHV001182

PATIENT
  Age: 61 Year
  Sex: Female
  Weight: 70.370 kg

DRUGS (2)
  1. NURTEC ODT [Suspect]
     Active Substance: RIMEGEPANT SULFATE
     Indication: Migraine
     Dosage: ONE TIME DOSE?CALLER STATES SHE DISPOSED OF THE ORIGINAL BOX OF MEDICATION THAT SHE TOOK. SHE WAS SE
     Route: 060
  2. BOTOX [Concomitant]
     Active Substance: ONABOTULINUMTOXINA
     Indication: Migraine

REACTIONS (1)
  - Migraine [Recovered/Resolved]
